FAERS Safety Report 16779094 (Version 1)
Quarter: 2019Q3

REPORT INFORMATION
  Report Type: Report from Study
  Country: None (occurrence: AU)
  Receive Date: 20190906
  Receipt Date: 20190906
  Transmission Date: 20191005
  Serious: Yes (Hospitalization)
  Sender: FDA-Public Use
  Company Number: AU-ABBVIE-19K-008-2912078-00

PATIENT
  Age: 74 Year
  Sex: Male

DRUGS (2)
  1. LUPRON DEPOT [Suspect]
     Active Substance: LEUPROLIDE ACETATE
     Indication: PROSTATE CANCER
     Route: 030
     Dates: start: 20190617
  2. AMOXICILLIN. [Suspect]
     Active Substance: AMOXICILLIN
     Indication: VIRAL SEPSIS
     Route: 065

REACTIONS (3)
  - Tremor [Unknown]
  - Viral sepsis [Recovering/Resolving]
  - Influenza [Recovering/Resolving]

NARRATIVE: CASE EVENT DATE: 201908
